FAERS Safety Report 19576132 (Version 1)
Quarter: 2021Q3

REPORT INFORMATION
  Report Type: Spontaneous
  Country: US (occurrence: US)
  Receive Date: 20210718
  Receipt Date: 20210718
  Transmission Date: 20211014
  Serious: Yes (Disabling, Other)
  Sender: FDA-Public Use
  Company Number: None

PATIENT
  Age: 37 Year
  Sex: Female
  Weight: 47.25 kg

DRUGS (2)
  1. CIPRO [Suspect]
     Active Substance: CIPROFLOXACIN HYDROCHLORIDE
     Indication: DIVERTICULITIS
     Route: 048
     Dates: start: 20200930, end: 20201006
  2. FLAGYL [Suspect]
     Active Substance: METRONIDAZOLE\METRONIDAZOLE HYDROCHLORIDE

REACTIONS (16)
  - Visual impairment [None]
  - Hypokinesia [None]
  - Collagen disorder [None]
  - Joint noise [None]
  - Depression [None]
  - Arthralgia [None]
  - Asthenia [None]
  - Feeling abnormal [None]
  - Paraesthesia [None]
  - Muscle atrophy [None]
  - Crying [None]
  - Hypoaesthesia [None]
  - Anxiety [None]
  - Insomnia [None]
  - Vision blurred [None]
  - Fall [None]

NARRATIVE: CASE EVENT DATE: 20201006
